FAERS Safety Report 14512101 (Version 13)
Quarter: 2018Q4

REPORT INFORMATION
  Report Type: Report from Study
  Country: US (occurrence: US)
  Receive Date: 20180209
  Receipt Date: 20181002
  Transmission Date: 20190204
  Serious: Yes (Other)
  Sender: FDA-Public Use
  Company Number: US-PFIZER INC-2018036159

PATIENT
  Age: 74 Year
  Sex: Female
  Weight: 40 kg

DRUGS (9)
  1. IBRANCE [Suspect]
     Active Substance: PALBOCICLIB
     Dosage: 100 MG, CYCLIC (DAILY FOR 21 DAYS AND OFF 7 DAYS)
     Route: 048
     Dates: start: 20180112
  2. IBRANCE [Suspect]
     Active Substance: PALBOCICLIB
     Dosage: 75 MG, UNK
  3. COLLAGEN [Concomitant]
     Active Substance: COLLAGEN
     Dosage: UNK
  4. LETROZOLE. [Suspect]
     Active Substance: LETROZOLE
     Dosage: 2.5 MG, ONCE IN THE EVENING
  5. IBRANCE [Suspect]
     Active Substance: PALBOCICLIB
     Dosage: 100 MG, CYCLIC (DAILY, 3 WEEKS ON/1 WEEK OFF)
     Route: 048
     Dates: start: 20180409
  6. IBRANCE [Suspect]
     Active Substance: PALBOCICLIB
     Dosage: 100 MG, CYCLIC (DAILY, 3 WEEKS ON/1 WEEK OFF)
     Route: 048
     Dates: start: 20180315
  7. IBRANCE [Suspect]
     Active Substance: PALBOCICLIB
     Indication: BREAST CANCER METASTATIC
     Dosage: 125 MG, CYCLIC (DAILY, 3 WEEKS ON/1 WEEK OFF)
     Route: 048
     Dates: start: 20180112, end: 20180212
  8. IBRANCE [Suspect]
     Active Substance: PALBOCICLIB
     Dosage: 100 MG, CYCLIC (100 MG DAILY FOR 21 DAYS AND OFF 7 DAYS)
     Route: 048
  9. LETROZOLE. [Suspect]
     Active Substance: LETROZOLE
     Dosage: UNK, DAILY

REACTIONS (19)
  - Bone pain [Unknown]
  - Musculoskeletal pain [Recovered/Resolved]
  - Bone density decreased [Unknown]
  - Pre-existing condition improved [Unknown]
  - Mouth swelling [Recovering/Resolving]
  - Neoplasm progression [Unknown]
  - Fatigue [Recovering/Resolving]
  - Dyspepsia [Not Recovered/Not Resolved]
  - Nasopharyngitis [Unknown]
  - Low density lipoprotein increased [Unknown]
  - Constipation [Not Recovered/Not Resolved]
  - Abdominal pain upper [Unknown]
  - Gastrointestinal pain [Unknown]
  - Flatulence [Not Recovered/Not Resolved]
  - Weight gain poor [Not Recovered/Not Resolved]
  - White blood cell count decreased [Recovering/Resolving]
  - Alopecia [Unknown]
  - Bone marrow failure [Unknown]
  - Therapeutic response unexpected [Unknown]

NARRATIVE: CASE EVENT DATE: 2018
